FAERS Safety Report 24303621 (Version 1)
Quarter: 2024Q3

REPORT INFORMATION
  Report Type: Spontaneous
  Country: JP (occurrence: JP)
  Receive Date: 20240910
  Receipt Date: 20240910
  Transmission Date: 20241017
  Serious: Yes (Hospitalization)
  Sender: PFIZER
  Company Number: JP-PFIZER INC-202400252471

PATIENT
  Sex: Male

DRUGS (3)
  1. PAXLOVID [Suspect]
     Active Substance: NIRMATRELVIR\RITONAVIR
     Indication: COVID-19 treatment
     Dosage: [NIRMATRELVIR 150 MG]/[RITONAVIR 100 MG]; 2X/DAY
     Route: 048
  2. CARVEDILOL [Concomitant]
     Active Substance: CARVEDILOL
  3. BENIDIPINE [Concomitant]
     Active Substance: BENIDIPINE

REACTIONS (1)
  - Blood pressure systolic decreased [Recovered/Resolved]
